FAERS Safety Report 24673040 (Version 1)
Quarter: 2024Q4

REPORT INFORMATION
  Report Type: Spontaneous
  Country: CN (occurrence: CN)
  Receive Date: 20241128
  Receipt Date: 20241128
  Transmission Date: 20250115
  Serious: Yes (Other)
  Sender: GE HEALTHCARE
  Company Number: CN-GE HEALTHCARE-2024CSU013343

PATIENT
  Age: 83 Year
  Sex: Female

DRUGS (1)
  1. OMNIPAQUE [Suspect]
     Active Substance: IOHEXOL
     Indication: Computerised tomogram heart
     Dosage: 100 ML, TOTAL
     Route: 041
     Dates: start: 20241030, end: 20241030

REACTIONS (8)
  - Stridor [Recovering/Resolving]
  - Rales [Recovering/Resolving]
  - Respiratory rate increased [Recovering/Resolving]
  - Oxygen saturation decreased [Recovering/Resolving]
  - Chest discomfort [Recovering/Resolving]
  - Chest pain [Recovering/Resolving]
  - Dyspnoea [Recovering/Resolving]
  - Cyanosis [Recovering/Resolving]

NARRATIVE: CASE EVENT DATE: 20241030
